FAERS Safety Report 16034008 (Version 1)
Quarter: 2019Q1

REPORT INFORMATION
  Report Type: Spontaneous
  Country: US (occurrence: US)
  Receive Date: 20190305
  Receipt Date: 20190305
  Transmission Date: 20190418
  Serious: No
  Sender: FDA-Public Use
  Company Number: US-IMPAX LABORATORIES, LLC-2018-IPXL-02560

PATIENT
  Age: 81 Year
  Sex: Female

DRUGS (1)
  1. RYTARY [Suspect]
     Active Substance: CARBIDOPA\LEVODOPA
     Indication: PARKINSON^S DISEASE
     Dosage: 36.25/145MG, TWO CAPSULE ,THREE TIMES DAILY  (5:30AM, 11:30AM, AND 5:30PM)
     Route: 065

REACTIONS (4)
  - Hypoacusis [Unknown]
  - Dyskinesia [Unknown]
  - Hypokinesia [Unknown]
  - Dysgraphia [Unknown]
